FAERS Safety Report 6464779-X (Version None)
Quarter: 2009Q4

REPORT INFORMATION
  Report Type: 
  Country: None (occurrence: None)
  Receive Date: 20091201
  Receipt Date: 20091119
  Transmission Date: 20100525
  Serious: Yes (Other)
  Sender: FDA-Public Use
  Company Number: PHHY2009DE46040

PATIENT
  Sex: Male

DRUGS (6)
  1. LOCOL [Suspect]
     Indication: HYPERCHOLESTEROLAEMIA
     Dosage: 40 MG/D
     Route: 048
     Dates: start: 20090101
  2. DICLOFENAC [Concomitant]
     Dosage: UNK
  3. CORTISON [Concomitant]
     Dosage: UNK
  4. RAMIPRIL [Concomitant]
     Dosage: UNK
  5. LORANO [Concomitant]
     Dosage: UNK
  6. NEBIVOLOL [Concomitant]
     Dosage: UNK

REACTIONS (2)
  - ESCHAR [None]
  - PERIOSTITIS [None]
